FAERS Safety Report 6061964-6 (Version None)
Quarter: 2009Q1

REPORT INFORMATION
  Report Type: 
  Country: None (occurrence: None)
  Receive Date: 20090202
  Receipt Date: 20090121
  Transmission Date: 20090719
  Serious: Yes (Death, Other)
  Sender: FDA-Public Use
  Company Number: JP-ABBOTT-09P-087-0500890-00

PATIENT
  Age: 80 Year
  Sex: Male

DRUGS (13)
  1. LEUPROLIDE ACETATE [Suspect]
     Indication: PROSTATE CANCER STAGE IV
     Route: 058
     Dates: start: 20070319, end: 20070904
  2. PACIF [Concomitant]
     Indication: PAIN
     Route: 048
     Dates: start: 20070330, end: 20070907
  3. PACIF [Concomitant]
     Route: 048
     Dates: start: 20070908, end: 20071221
  4. CHLORMADINONE ACETATE TAB [Concomitant]
     Indication: PROSTATE CANCER STAGE IV
     Route: 048
     Dates: start: 20070507, end: 20071011
  5. CASODEX [Concomitant]
     Indication: PROSTATE CANCER STAGE IV
     Route: 048
     Dates: start: 20071127, end: 20071221
  6. CALBLOCK [Concomitant]
     Indication: HYPERTENSION
     Route: 048
     Dates: start: 20070315, end: 20071221
  7. PRERAN [Concomitant]
     Indication: HYPERTENSION
     Route: 048
     Dates: start: 20070315, end: 20071221
  8. KADIAN [Concomitant]
     Indication: PAIN
     Route: 048
     Dates: start: 20070308, end: 20070404
  9. MS TWICELON [Concomitant]
     Indication: PAIN
     Route: 048
     Dates: start: 20070405
  10. MS TWICELON [Concomitant]
     Route: 048
     Dates: start: 20070501, end: 20071024
  11. ANPEC [Concomitant]
     Indication: PAIN
     Route: 054
     Dates: start: 20070815, end: 20071018
  12. DUROTEP [Concomitant]
     Indication: PAIN
     Route: 062
     Dates: start: 20071024, end: 20071026
  13. DUROTEP [Concomitant]
     Route: 062
     Dates: start: 20071027, end: 20071229

REACTIONS (2)
  - METASTASES TO BONE [None]
  - PROSTATE CANCER [None]
